FAERS Safety Report 20415681 (Version 1)
Quarter: 2022Q1

REPORT INFORMATION
  Report Type: Spontaneous
  Country: CN (occurrence: CN)
  Receive Date: 20220202
  Receipt Date: 20220202
  Transmission Date: 20220424
  Serious: Yes (Hospitalization)
  Sender: FDA-Public Use
  Company Number: CN-BAXTER-2022BAX002086

PATIENT
  Age: 63 Year
  Sex: Female
  Weight: 50 kg

DRUGS (4)
  1. CYCLOPHOSPHAMIDE [Suspect]
     Active Substance: CYCLOPHOSPHAMIDE
     Indication: Lymphoma
     Dosage: NS (250 ML) + CYCLOPHOSPHAMIDE FOR INJECTION (982 MG) ON D1
     Route: 041
     Dates: start: 20211123, end: 20211123
  2. SODIUM CHLORIDE [Suspect]
     Active Substance: SODIUM CHLORIDE
     Indication: Medication dilution
     Dosage: NS (250 ML) + CYCLOPHOSPHAMIDE FOR INJECTION (982 MG) ON D1
     Route: 041
     Dates: start: 20211123, end: 20211123
  3. SODIUM CHLORIDE [Suspect]
     Active Substance: SODIUM CHLORIDE
     Dosage: NS (500 ML) + VINDESINE SULFATE FOR INJECTION (4 MG) ON D1
     Route: 041
     Dates: start: 20211123, end: 20211123
  4. VINDESINE SULFATE [Suspect]
     Active Substance: VINDESINE SULFATE
     Indication: Lymphoma
     Dosage: NS (500 ML) + VINDESINE SULFATE FOR INJECTION (4 MG) ON D1
     Route: 041
     Dates: start: 20211123, end: 20211123

REACTIONS (2)
  - Myelosuppression [Recovering/Resolving]
  - White blood cell count decreased [Recovering/Resolving]

NARRATIVE: CASE EVENT DATE: 20211130
